FAERS Safety Report 4835776-2 (Version None)
Quarter: 2005Q4

REPORT INFORMATION
  Report Type: 
  Country: None (occurrence: None)
  Receive Date: 20051123
  Receipt Date: 20051117
  Transmission Date: 20060501
  Serious: Yes (Disabling)
  Sender: FDA-Public Use
  Company Number: US-GLAXOSMITHKLINE-A0582771A

PATIENT
  Sex: Female

DRUGS (3)
  1. LAMICTAL [Suspect]
     Indication: BIPOLAR DISORDER
     Dosage: 150MG PER DAY
     Route: 048
     Dates: start: 20040201, end: 20051116
  2. AMBIEN [Concomitant]
  3. TRILEPTAL [Concomitant]

REACTIONS (6)
  - ACNE [None]
  - DIARRHOEA [None]
  - INFLUENZA LIKE ILLNESS [None]
  - LIP ULCERATION [None]
  - MOUTH ULCERATION [None]
  - TONGUE ULCERATION [None]
